FAERS Safety Report 18959216 (Version 1)
Quarter: 2021Q1

REPORT INFORMATION
  Report Type: Spontaneous
  Country: NZ (occurrence: NZ)
  Receive Date: 20210302
  Receipt Date: 20210302
  Transmission Date: 20210420
  Serious: Yes (Other)
  Sender: FDA-Public Use
  Company Number: NZ-ASTRAZENECA-2021A093946

PATIENT
  Sex: Female

DRUGS (3)
  1. FULVESTRANT. [Suspect]
     Active Substance: FULVESTRANT
     Route: 030
  2. IBRANCE [Suspect]
     Active Substance: PALBOCICLIB
     Route: 065
     Dates: start: 202004
  3. DEXAMETHASONE. [Concomitant]
     Active Substance: DEXAMETHASONE
     Indication: BONE PAIN

REACTIONS (9)
  - Lip blister [Unknown]
  - Arthralgia [Unknown]
  - Tumour marker increased [Unknown]
  - Breast cancer female [Unknown]
  - Dry mouth [Unknown]
  - Stomatitis [Unknown]
  - Pharyngitis [Unknown]
  - Fracture [Unknown]
  - Ulcer [Unknown]
